FAERS Safety Report 7941260-X (Version None)
Quarter: 2011Q4

REPORT INFORMATION
  Report Type: 
  Country: None (occurrence: None)
  Receive Date: 20111128
  Receipt Date: 20111116
  Transmission Date: 20120403
  Serious: Yes (Other)
  Sender: FDA-Public Use
  Company Number: BR-SANOFI-AVENTIS-2011SA076066

PATIENT
  Age: 67 Year
  Sex: Female
  Weight: 79 kg

DRUGS (6)
  1. ATACAND [Concomitant]
     Indication: BLOOD PRESSURE
     Route: 048
  2. VENOCUR TRIPLEX [Concomitant]
     Route: 048
     Dates: start: 20010101
  3. DIAMICRON [Concomitant]
     Indication: TYPE 2 DIABETES MELLITUS
     Dosage: 4 TABS A DAY
     Route: 048
  4. LANTUS [Suspect]
     Indication: TYPE 2 DIABETES MELLITUS
     Route: 065
     Dates: start: 20070101
  5. AUTOPEN 24 [Suspect]
     Indication: DEVICE THERAPY
  6. NEURONTIN [Concomitant]
     Indication: DIABETIC NEUROPATHY
     Dosage: 5 TABS A DAY
     Route: 048
     Dates: start: 20060101

REACTIONS (5)
  - HYPERGLYCAEMIA [None]
  - GLYCOSYLATED HAEMOGLOBIN INCREASED [None]
  - CAROTID ARTERY OCCLUSION [None]
  - ANAEMIA [None]
  - INCORRECT DOSE ADMINISTERED [None]
